FAERS Safety Report 23051440 (Version 2)
Quarter: 2024Q4

REPORT INFORMATION
  Report Type: Report from Study
  Country: US (occurrence: US)
  Receive Date: 20231010
  Receipt Date: 20241014
  Transmission Date: 20250115
  Serious: Yes (Hospitalization, Other)
  Sender: BAYER HEALTHCARE PHARMACEUTICALS INC.
  Company Number: US-BAYER-2023P009384

PATIENT
  Age: 70 Year
  Sex: Female

DRUGS (12)
  1. RIOCIGUAT [Suspect]
     Active Substance: RIOCIGUAT
     Indication: Pulmonary arterial hypertension
     Dosage: UNK
     Dates: start: 20221010, end: 20221026
  2. RIOCIGUAT [Suspect]
     Active Substance: RIOCIGUAT
     Indication: Pulmonary arterial hypertension
     Dosage: UNK
     Dates: start: 20221104
  3. RIOCIGUAT [Suspect]
     Active Substance: RIOCIGUAT
     Indication: Pulmonary arterial hypertension
     Dosage: 2.5 MG, TID
     Dates: start: 20230310
  4. FUROSEMIDE [Concomitant]
     Active Substance: FUROSEMIDE
  5. CLOPIDOGREL [Concomitant]
     Active Substance: CLOPIDOGREL BISULFATE
     Dosage: UNK
     Dates: start: 20220217
  6. AMOXICILLIN [Concomitant]
     Active Substance: AMOXICILLIN
  7. CEPHALEXIN [Concomitant]
     Active Substance: CEPHALEXIN
  8. COVID-19 vaccine [Concomitant]
  9. DOXYCYCLINE [Concomitant]
     Active Substance: DOXYCYCLINE
  10. IRON SUCROSE [Concomitant]
     Active Substance: IRON SUCROSE
  11. METOLAZONE [Concomitant]
     Active Substance: METOLAZONE
  12. OXYGEN [Concomitant]
     Active Substance: OXYGEN

REACTIONS (6)
  - Anaemia [Recovered/Resolved]
  - Oedema peripheral [Recovered/Resolved]
  - Dyspnoea [Recovered/Resolved]
  - Cardiac failure acute [Recovered/Resolved]
  - Syncope [Recovered/Resolved]
  - Localised oedema [Recovered/Resolved]

NARRATIVE: CASE EVENT DATE: 20221026
